FAERS Safety Report 15545981 (Version 1)
Quarter: 2018Q4

REPORT INFORMATION
  Report Type: Spontaneous
  Country: US (occurrence: US)
  Receive Date: 20181024
  Receipt Date: 20181024
  Transmission Date: 20190205
  Serious: No
  Sender: FDA-Public Use
  Company Number: US-PFIZER INC-2018426571

PATIENT
  Age: 45 Year
  Sex: Male

DRUGS (2)
  1. DEPO-MEDROL [Suspect]
     Active Substance: METHYLPREDNISOLONE ACETATE
     Indication: LIMB INJURY
     Dosage: UNK
  2. RANEXA [Suspect]
     Active Substance: RANOLAZINE
     Dosage: UNK

REACTIONS (2)
  - Feeling abnormal [Unknown]
  - Ventricular extrasystoles [Not Recovered/Not Resolved]
